FAERS Safety Report 9614704 (Version 1)
Quarter: 2013Q4

REPORT INFORMATION
  Report Type: Report from Study
  Country: FR (occurrence: FR)
  Receive Date: 20131011
  Receipt Date: 20131011
  Transmission Date: 20140711
  Serious: Yes (Hospitalization)
  Sender: FDA-Public Use
  Company Number: FR-SA-2013SA097735

PATIENT
  Age: 63 Year
  Sex: Male

DRUGS (4)
  1. CAMPATH [Suspect]
     Indication: CHRONIC LYMPHOCYTIC LEUKAEMIA
     Route: 042
     Dates: start: 201206
  2. NOXAFIL [Suspect]
     Indication: PROPHYLAXIS
     Dosage: DOSE 1 DU 3X/DAY
     Route: 048
  3. ZELITREX [Suspect]
     Indication: PROPHYLAXIS
     Dosage: DAILY DOSE: 1 DU 2X/DAY
     Route: 048
     Dates: end: 201209
  4. BACTRIM [Suspect]
     Indication: PROPHYLAXIS
     Dosage: DOSE-1DU, 3X/WEEK
     Route: 065

REACTIONS (1)
  - Drug reaction with eosinophilia and systemic symptoms [Recovered/Resolved]
